FAERS Safety Report 24341199 (Version 2)
Quarter: 2024Q3

REPORT INFORMATION
  Report Type: Spontaneous
  Country: US (occurrence: US)
  Receive Date: 20240919
  Receipt Date: 20240924
  Transmission Date: 20241017
  Serious: Yes (Hospitalization)
  Sender: BAUSCH AND LOMB
  Company Number: US-MLMSERVICE-20240909-PI186795-00293-1

PATIENT
  Age: 12 Year
  Sex: Female

DRUGS (5)
  1. ALBUTEROL [Suspect]
     Active Substance: ALBUTEROL
     Indication: Asthma
     Dosage: TWO DOSES OF ALBUTEROL INHALER (UNKNOWN DOSE)
     Route: 055
  2. ALBUTEROL [Suspect]
     Active Substance: ALBUTEROL
     Dosage: TWO DOSES OF ALBUTEROL NEBULIZER 2.5 MG/3 ML
     Route: 055
  3. ALBUTEROL\IPRATROPIUM [Suspect]
     Active Substance: ALBUTEROL\IPRATROPIUM
     Indication: Asthma
     Dosage: NEBULIZED AT 0.5-2.5 MG/3 ML
     Route: 055
  4. METHYLPREDNISOLONE [Concomitant]
     Active Substance: METHYLPREDNISOLONE
     Indication: Asthma
     Route: 065
  5. SODIUM CHLORIDE [Concomitant]
     Active Substance: SODIUM CHLORIDE
     Indication: Dehydration
     Dosage: BOLUS
     Route: 065

REACTIONS (2)
  - Unmasking of previously unidentified disease [Unknown]
  - Electrocardiogram QT prolonged [Recovered/Resolved]
